FAERS Safety Report 7407855-7 (Version None)
Quarter: 2011Q2

REPORT INFORMATION
  Report Type: 
  Country: None (occurrence: None)
  Receive Date: 20110406
  Receipt Date: 20110406
  Transmission Date: 20111010
  Serious: Yes (Death)
  Sender: FDA-Public Use
  Company Number: None

PATIENT
  Sex: Male
  Weight: 72.6 kg

DRUGS (11)
  1. OFATUMUMAB , GSK [Suspect]
     Indication: LYMPHOMA
     Dosage: 1,000 ML WEEKLY IV
     Route: 042
     Dates: start: 20110131, end: 20110221
  2. CODINE SULFATE [Concomitant]
  3. FENTANYL-100 [Concomitant]
  4. IMIPENEM AND CILASTATIN SODIUM [Concomitant]
  5. METAPROLOL [Concomitant]
  6. ACETAMINOPHEN [Concomitant]
  7. DILAUDID [Concomitant]
  8. FENTANYL [Concomitant]
  9. CODINE PHOSPHATE [Concomitant]
  10. LORAZEPAM [Concomitant]
  11. VANCOMYCIN [Concomitant]

REACTIONS (3)
  - BACTERAEMIA [None]
  - SEPSIS [None]
  - HYPERCALCAEMIA [None]
